FAERS Safety Report 9395613 (Version 1)
Quarter: 2013Q3

REPORT INFORMATION
  Report Type: Report from Study
  Country: US (occurrence: US)
  Receive Date: 20130711
  Receipt Date: 20130711
  Transmission Date: 20140515
  Serious: Yes (Other)
  Sender: FDA-Public Use
  Company Number: US-BAYER-2013-082016

PATIENT
  Sex: Female

DRUGS (2)
  1. ASPIRIN [Suspect]
     Indication: ANTICOAGULANT THERAPY
     Dosage: DAILY DOSE 81 MG
  2. ASPIRIN [Suspect]
     Indication: PROPHYLAXIS

REACTIONS (2)
  - Post procedural haemorrhage [None]
  - Post procedural haemorrhage [None]
